FAERS Safety Report 23445200 (Version 1)
Quarter: 2024Q1

REPORT INFORMATION
  Report Type: Spontaneous
  Country: US (occurrence: US)
  Receive Date: 20240125
  Receipt Date: 20240125
  Transmission Date: 20240410
  Serious: No
  Sender: FDA-Public Use
  Company Number: US-SANDOZ-SDZ2024US007549

PATIENT
  Sex: Female

DRUGS (1)
  1. LATANOPROST [Suspect]
     Active Substance: LATANOPROST
     Indication: Product used for unknown indication
     Dosage: 2.5 ML, QD 1XDAY IN ONE EYE
     Route: 065

REACTIONS (3)
  - Joint injury [Unknown]
  - Product container issue [Unknown]
  - Wrong technique in product usage process [Unknown]
